FAERS Safety Report 10176708 (Version 1)
Quarter: 2014Q2

REPORT INFORMATION
  Report Type: Report from Study
  Country: AU (occurrence: AU)
  Receive Date: 20140516
  Receipt Date: 20140516
  Transmission Date: 20141212
  Serious: Yes (Other)
  Sender: FDA-Public Use
  Company Number: AU-SA-2014SA058396

PATIENT
  Age: 54 Year
  Sex: Female

DRUGS (6)
  1. AUBAGIO [Suspect]
     Indication: MULTIPLE SCLEROSIS
     Route: 048
     Dates: start: 20130913
  2. DIAFORMIN [Concomitant]
  3. VITAMIN B [Concomitant]
  4. FISH OIL [Concomitant]
  5. LIPITOR [Concomitant]
  6. GLICLAZIDE [Concomitant]

REACTIONS (4)
  - Spinal cord disorder [Unknown]
  - Back pain [Unknown]
  - Nausea [Unknown]
  - Diarrhoea [Unknown]
